FAERS Safety Report 16918592 (Version 1)
Quarter: 2019Q4

REPORT INFORMATION
  Report Type: Spontaneous
  Country: TR (occurrence: TR)
  Receive Date: 20191015
  Receipt Date: 20191015
  Transmission Date: 20200122
  Serious: Yes (Other)
  Sender: FDA-Public Use
  Company Number: TR-ROCHE-2433485

PATIENT
  Age: 34 Year
  Sex: Female

DRUGS (1)
  1. PEGASYS [Suspect]
     Active Substance: PEGINTERFERON ALFA-2A
     Indication: HYPEREOSINOPHILIC SYNDROME
     Route: 065
     Dates: start: 20191002

REACTIONS (5)
  - Hallucination [Unknown]
  - Hypoaesthesia [Unknown]
  - Bone pain [Unknown]
  - Pyrexia [Unknown]
  - Malaria [Unknown]

NARRATIVE: CASE EVENT DATE: 20191002
